FAERS Safety Report 10383757 (Version 1)
Quarter: 2014Q1

REPORT INFORMATION
  Report Type: Spontaneous
  Country: US (occurrence: None)
  Receive Date: 20140306
  Receipt Date: 20140306
  Transmission Date: 20141002
  Serious: Yes (Other)
  Sender: FDA-Public Use
  Company Number: 163-21880-13072231

PATIENT
  Age: 56 Year
  Sex: Male

DRUGS (10)
  1. REVLIMID [Suspect]
     Indication: PLASMA CELL MYELOMA
     Dosage: 15 MG, 21 IN 28 D, PO
     Route: 048
     Dates: start: 201201
  2. HYDROCODONE-ACETAMINOPHEN (VICODIN) [Concomitant]
  3. ZOMETA (ZOLEDRONIC ACID) [Concomitant]
  4. AMLODIPINE BESYLATE (AMLODIPINE BESILATE) [Concomitant]
  5. PRAVASTATIN SODIUM [Concomitant]
  6. PROMETHAZINE [Concomitant]
  7. LISINOPRIL-HCTZ (ZESTORETIC) [Concomitant]
  8. OXYCODONE HCL (OXYCODONE HYDROCHLORIDE) [Concomitant]
  9. METOPROLOL TARTRATE [Concomitant]
  10. OXYCODONE-ACETAMINOPHEN (OXYCOCET) [Concomitant]

REACTIONS (1)
  - Blood testosterone decreased [None]
